APPROVED DRUG PRODUCT: LISINOPRIL
Active Ingredient: LISINOPRIL
Strength: 5MG
Dosage Form/Route: TABLET;ORAL
Application: A075999 | Product #002
Applicant: RISING PHARMA HOLDINGS INC
Approved: Jul 1, 2002 | RLD: No | RS: No | Type: DISCN